FAERS Safety Report 16574950 (Version 2)
Quarter: 2019Q3

REPORT INFORMATION
  Report Type: Spontaneous
  Country: FR (occurrence: FR)
  Receive Date: 20190715
  Receipt Date: 20190724
  Transmission Date: 20191004
  Serious: Yes (Hospitalization, Other)
  Sender: FDA-Public Use
  Company Number: PHHY2019FR158490

PATIENT
  Sex: Female

DRUGS (10)
  1. GONADOTROPHINE CHORIONIQUE ENDO 1500 UI/1ML [Suspect]
     Active Substance: GONADOTROPHIN, CHORIONIC
     Dosage: 10000 IU, UNK
     Route: 030
     Dates: start: 19980201, end: 19980201
  2. PROGESTERONE. [Suspect]
     Active Substance: PROGESTERONE
     Indication: OVULATION INDUCTION
     Dosage: 4 UG/LITRE (4 CAPSULES PER DAYS FOR 15 DAYS)
     Route: 048
     Dates: start: 19980205
  3. DECAPEPTYL (ACETATE) [Suspect]
     Active Substance: TRIPTORELIN ACETATE
     Indication: IN VITRO FERTILISATION
     Dosage: 1 UG/LITRE (1 VIAL)
     Route: 058
     Dates: start: 19980107, end: 19980121
  4. DECAPEPTYL (ACETATE) [Suspect]
     Active Substance: TRIPTORELIN ACETATE
     Dosage: 3 UG/LITRE (THREE VIALS PER DAY)
     Route: 030
     Dates: start: 19980122, end: 19980127
  5. GONADOTROPHINE CHORIONIQUE ENDO 1500 UI/1ML [Suspect]
     Active Substance: GONADOTROPHIN, CHORIONIC
     Indication: OVULATION INDUCTION
     Dosage: 1500 IU, UNK
     Route: 030
  6. PROGESTERONE. [Suspect]
     Active Substance: PROGESTERONE
     Dosage: 4 CAPSULES PER DAY FOR 15 DAYS
     Route: 048
     Dates: start: 19980205
  7. DECAPEPTYL (ACETATE) [Suspect]
     Active Substance: TRIPTORELIN ACETATE
     Dosage: 0.5 UG/LITRE (1/2 A VIAL PER DAY WITH COMBINATION)
     Route: 058
     Dates: start: 19980107, end: 19980121
  8. METRODIN [Suspect]
     Active Substance: UROFOLLITROPIN
     Indication: IN VITRO FERTILISATION
     Dosage: DOSE 1 (UNIT UNKNOWN), QD
     Route: 030
     Dates: start: 19980122, end: 19980127
  9. MENOTROPHIN [Suspect]
     Active Substance: MENOTROPINS
     Indication: IN VITRO FERTILISATION
     Dosage: 3 UG/LITRE (THREE VIALS PER DAY)
     Route: 030
     Dates: start: 19980122, end: 19980127
  10. MENOTROPHIN [Suspect]
     Active Substance: MENOTROPINS
     Dosage: 3 VIALS PER DAY
     Route: 030
     Dates: start: 19980122, end: 19980127

REACTIONS (4)
  - Incorrect dose administered [Unknown]
  - Ovarian hyperstimulation syndrome [Recovering/Resolving]
  - Pleural effusion [Recovering/Resolving]
  - Maternal exposure before pregnancy [Unknown]

NARRATIVE: CASE EVENT DATE: 19980210
